FAERS Safety Report 9449901 (Version 1)
Quarter: 2013Q3

REPORT INFORMATION
  Report Type: Spontaneous
  Country: US (occurrence: US)
  Receive Date: 20130809
  Receipt Date: 20130809
  Transmission Date: 20140515
  Serious: Yes (Hospitalization)
  Sender: FDA-Public Use
  Company Number: US-PERRIGO-13US007940

PATIENT
  Age: 18 Month
  Sex: 0

DRUGS (1)
  1. IBUPROFEN 20 MG/ML CHILD BERRY 897 [Suspect]
     Indication: PRODUCT USED FOR UNKNOWN INDICATION
     Dosage: 5 MG/KG/DOSE; 6 DOSES
     Route: 048

REACTIONS (1)
  - Renal failure acute [Not Recovered/Not Resolved]
